FAERS Safety Report 16370308 (Version 2)
Quarter: 2019Q2

REPORT INFORMATION
  Report Type: Spontaneous
  Country: IT (occurrence: IT)
  Receive Date: 20190530
  Receipt Date: 20190603
  Transmission Date: 20190711
  Serious: Yes (Hospitalization, Other)
  Sender: FDA-Public Use
  Company Number: IT-ASTELLAS-2019US022807

PATIENT
  Age: 59 Year
  Sex: Female

DRUGS (5)
  1. TACROLIMUS. [Suspect]
     Active Substance: TACROLIMUS
     Dosage: UNK UNK, UNKNOWN FREQ.
     Route: 065
  2. TACROLIMUS. [Suspect]
     Active Substance: TACROLIMUS
     Indication: PRODUCT USED FOR UNKNOWN INDICATION
     Dosage: UNK UNK, UNKNOWN FREQ.
     Route: 065
  3. CICLOSPORIN [Suspect]
     Active Substance: CYCLOSPORINE
     Indication: RENAL AND LIVER TRANSPLANT
     Dosage: UNK UNK, UNKNOWN FREQ.
     Route: 065
  4. METHYLPREDNISOLONE. [Concomitant]
     Active Substance: METHYLPREDNISOLONE
     Indication: PRODUCT USED FOR UNKNOWN INDICATION
     Dosage: UNK UNK, UNKNOWN FREQ.
     Route: 065
  5. PREDNISONE. [Concomitant]
     Active Substance: PREDNISONE
     Indication: PRODUCT USED FOR UNKNOWN INDICATION
     Dosage: UNK UNK, UNKNOWN FREQ.
     Route: 065

REACTIONS (25)
  - Jejunal perforation [Recovered/Resolved]
  - Somnolence [Recovered/Resolved]
  - Cholangitis [Recovered/Resolved]
  - Hypertension [Recovered/Resolved]
  - Red blood cell schistocytes present [Recovered/Resolved]
  - Delirium [Recovered/Resolved]
  - Thrombocytopenia [Recovering/Resolving]
  - Anastomotic leak [Recovered/Resolved]
  - Anuria [Recovering/Resolving]
  - Gastrointestinal haemorrhage [Recovered/Resolved]
  - Liver transplant rejection [Recovered/Resolved]
  - Lymphocele [Recovered/Resolved]
  - Neurotoxicity [Recovered/Resolved]
  - Staphylococcal bacteraemia [Unknown]
  - Streptococcal infection [Recovered/Resolved]
  - Wound necrosis [Recovered/Resolved]
  - Bronchopulmonary aspergillosis [Unknown]
  - Cytomegalovirus infection [Unknown]
  - Haemolytic anaemia [Recovering/Resolving]
  - Renal impairment [Recovering/Resolving]
  - Blood lactate dehydrogenase increased [Recovered/Resolved]
  - Disorientation [Recovered/Resolved]
  - Escherichia bacteraemia [Unknown]
  - Renal tubular necrosis [Recovering/Resolving]
  - Haemolytic uraemic syndrome [Recovering/Resolving]
